FAERS Safety Report 24941503 (Version 2)
Quarter: 2025Q1

REPORT INFORMATION
  Report Type: Spontaneous
  Country: PT (occurrence: PT)
  Receive Date: 20250207
  Receipt Date: 20250303
  Transmission Date: 20250409
  Serious: Yes (Hospitalization, Other)
  Sender: JOHNSON AND JOHNSON
  Company Number: None

PATIENT
  Sex: Male

DRUGS (10)
  1. ZYTIGA [Suspect]
     Active Substance: ABIRATERONE ACETATE
     Indication: Prostate cancer
     Route: 048
     Dates: start: 20230121, end: 20230122
  2. ZYTIGA [Suspect]
     Active Substance: ABIRATERONE ACETATE
     Route: 048
     Dates: start: 20241216, end: 20250103
  3. Triptorrelina [Concomitant]
     Indication: Prostate cancer
     Dosage: SEMESTRAL
     Dates: start: 20241216
  4. PREDNISOLONE [Concomitant]
     Active Substance: PREDNISOLONE
     Indication: Prostate cancer
     Route: 048
  5. RAMIPRIL [Concomitant]
     Active Substance: RAMIPRIL
     Indication: Product used for unknown indication
     Route: 048
  6. NIMODIPINE [Concomitant]
     Active Substance: NIMODIPINE
     Indication: Product used for unknown indication
     Route: 048
  7. ROSUVASTATINE/EZETIMIBE [Concomitant]
     Indication: Product used for unknown indication
     Route: 048
  8. ASPIRIN [Concomitant]
     Active Substance: ASPIRIN
     Indication: Lacunar infarction
     Route: 048
  9. BETAHISTINE [Concomitant]
     Active Substance: BETAHISTINE
     Indication: Product used for unknown indication
     Route: 048
  10. DONEPEZILO [DONEPEZIL] [Concomitant]
     Indication: Product used for unknown indication
     Route: 048

REACTIONS (7)
  - Rash [Recovered/Resolved]
  - Lip oedema [Recovered/Resolved]
  - Pyrexia [Recovered/Resolved]
  - Muscle tightness [Recovered/Resolved]
  - Rash maculo-papular [Recovered/Resolved]
  - Eyelid oedema [Recovered/Resolved]
  - Face oedema [Recovered/Resolved]

NARRATIVE: CASE EVENT DATE: 20250103
